FAERS Safety Report 4307814-7 (Version None)
Quarter: 2004Q1

REPORT INFORMATION
  Report Type: 
  Country: None (occurrence: None)
  Receive Date: 20040226
  Receipt Date: 20030701
  Transmission Date: 20041129
  Serious: Yes (Hospitalization)
  Sender: FDA-Public Use
  Company Number: 2003164309US

PATIENT
  Age: 86 Year
  Sex: Female

DRUGS (5)
  1. CELEBREX [Suspect]
     Indication: OSTEOARTHRITIS
     Dosage: 200 MG, ORAL
     Route: 048
     Dates: start: 20030613, end: 20030615
  2. SYNTHROID [Concomitant]
  3. ACCUPRIL [Concomitant]
  4. GLYNASE [Concomitant]
  5. ACTOS [Concomitant]

REACTIONS (3)
  - DIZZINESS [None]
  - NAUSEA [None]
  - POLLAKIURIA [None]
